FAERS Safety Report 13540849 (Version 8)
Quarter: 2018Q2

REPORT INFORMATION
  Report Type: Report from Study
  Country: GB (occurrence: GB)
  Receive Date: 20170512
  Receipt Date: 20180502
  Transmission Date: 20180711
  Serious: Yes (Other)
  Sender: FDA-Public Use
  Company Number: GB-JNJFOC-20170507695

PATIENT
  Sex: Male
  Weight: 60.5 kg

DRUGS (2)
  1. STELARA [Suspect]
     Active Substance: USTEKINUMAB
     Indication: PSORIASIS
     Route: 058
     Dates: start: 201704
  2. STELARA [Suspect]
     Active Substance: USTEKINUMAB
     Indication: PSORIASIS
     Dosage: ON WEEK 0
     Route: 058
     Dates: start: 20120716, end: 20160811

REACTIONS (3)
  - Psoriasis [Not Recovered/Not Resolved]
  - Intestinal perforation [Unknown]
  - Adenocarcinoma of colon [Unknown]
